FAERS Safety Report 14679420 (Version 1)
Quarter: 2018Q1

REPORT INFORMATION
  Report Type: Spontaneous
  Country: US (occurrence: US)
  Receive Date: 20180323
  Receipt Date: 20180323
  Transmission Date: 20180509
  Serious: Yes (Life-Threatening, Other)
  Sender: FDA-Public Use
  Company Number: None

PATIENT
  Age: 70 Year
  Sex: Female
  Weight: 65.25 kg

DRUGS (7)
  1. ATENENOL [Concomitant]
  2. RESVERETROL [Concomitant]
  3. VITAMIN D3 [Concomitant]
     Active Substance: CHOLECALCIFEROL
  4. DESSICATED THYROID 81.25MG CAPSULE [Suspect]
     Active Substance: THYROID, UNSPECIFIED
     Indication: THYROIDECTOMY
     Dosage: ?          QUANTITY:90 CAPSULE(S);?
     Route: 048
     Dates: start: 20180126, end: 20180308
  5. ARMOUR THYROID [Concomitant]
     Active Substance: THYROID, PORCINE
  6. SIMVASTATIN. [Concomitant]
     Active Substance: SIMVASTATIN
  7. CLONAZEPAN [Concomitant]
     Active Substance: CLONAZEPAM

REACTIONS (9)
  - Product compounding quality issue [None]
  - Alopecia [None]
  - Depression [None]
  - Fatigue [None]
  - Weight increased [None]
  - Dry skin [None]
  - Anxiety [None]
  - Hypothyroidism [None]
  - Drug ineffective [None]

NARRATIVE: CASE EVENT DATE: 20180126
